FAERS Safety Report 15932119 (Version 1)
Quarter: 2019Q1

REPORT INFORMATION
  Report Type: Spontaneous
  Country: US (occurrence: US)
  Receive Date: 20190207
  Receipt Date: 20190207
  Transmission Date: 20190417
  Serious: No
  Sender: FDA-Public Use
  Company Number: None

PATIENT
  Age: 10 Year
  Sex: Female
  Weight: 42.75 kg

DRUGS (7)
  1. BENADRYL PM [Concomitant]
  2. SINGULAIR DAILY [Concomitant]
  3. EUCRISA [Suspect]
     Active Substance: CRISABOROLE
     Indication: ECZEMA
     Route: 061
     Dates: start: 20190205, end: 20190205
  4. GUMMY MULTIVITAMIN [Concomitant]
  5. ALBUTEROL PM [Concomitant]
  6. TRIAMCINOLONE ACETONIDE 0.1% OINTMENT PRN [Concomitant]
  7. CLARITIN DAILY [Concomitant]

REACTIONS (4)
  - Application site pain [None]
  - Erythema [None]
  - Rash erythematous [None]
  - Eye swelling [None]

NARRATIVE: CASE EVENT DATE: 20190206
